FAERS Safety Report 11198851 (Version 1)
Quarter: 2015Q2

REPORT INFORMATION
  Report Type: Spontaneous
  Country: AU (occurrence: None)
  Receive Date: 20150616
  Receipt Date: 20150616
  Transmission Date: 20150821
  Serious: Yes (Hospitalization, Other)
  Sender: FDA-Public Use
  Company Number: 2015HINLIT0486

PATIENT
  Age: 10 Day
  Sex: Female
  Weight: .5 kg

DRUGS (1)
  1. SILDENAFIL (SILDENAFIL) [Suspect]
     Active Substance: SILDENAFIL
     Indication: PERSISTENT FOETAL CIRCULATION
     Route: 048

REACTIONS (3)
  - Neonatal hypotension [None]
  - Prerenal failure [None]
  - Premature baby [None]
